FAERS Safety Report 10591158 (Version 3)
Quarter: 2014Q4

REPORT INFORMATION
  Report Type: Report from Study
  Country: US (occurrence: US)
  Receive Date: 20141118
  Receipt Date: 20141202
  Transmission Date: 20150529
  Serious: Yes (Hospitalization)
  Sender: FDA-Public Use
  Company Number: US-SA-2014SA050123

PATIENT
  Sex: Male

DRUGS (1)
  1. AUBAGIO [Suspect]
     Active Substance: TERIFLUNOMIDE
     Indication: MULTIPLE SCLEROSIS
     Route: 048
     Dates: start: 20140329

REACTIONS (7)
  - Fatigue [Unknown]
  - Exercise tolerance decreased [Recovering/Resolving]
  - Arthritis [Recovering/Resolving]
  - Psychomotor hyperactivity [Unknown]
  - Rash [Recovered/Resolved]
  - Knee arthroplasty [Unknown]
  - Skin mass [Recovered/Resolved]

NARRATIVE: CASE EVENT DATE: 2014
